FAERS Safety Report 24311240 (Version 1)
Quarter: 2024Q3

REPORT INFORMATION
  Report Type: Spontaneous
  Country: US (occurrence: US)
  Receive Date: 20240912
  Receipt Date: 20240912
  Transmission Date: 20241017
  Serious: No
  Sender: ALVOGEN
  Company Number: None

PATIENT
  Sex: Male

DRUGS (1)
  1. LISDEXAMFETAMINE DIMESYLATE [Suspect]
     Active Substance: LISDEXAMFETAMINE DIMESYLATE
     Indication: Attention deficit hyperactivity disorder
     Dosage: 60 MG?RECEIVED FROM PHARMACY ON 02-MAR-2024?ALV 567
     Dates: start: 20240302

REACTIONS (5)
  - Irritability [Unknown]
  - Drug ineffective [Unknown]
  - Product substitution issue [Unknown]
  - Product dose omission issue [Unknown]
  - Product quality issue [Unknown]
